FAERS Safety Report 10142783 (Version 1)
Quarter: 2014Q2

REPORT INFORMATION
  Report Type: Spontaneous
  Country: US (occurrence: US)
  Receive Date: 20140430
  Receipt Date: 20140430
  Transmission Date: 20141212
  Serious: No
  Sender: FDA-Public Use
  Company Number: US-BAYER-2014-061777

PATIENT
  Age: 23 Year
  Sex: Female

DRUGS (1)
  1. YASMIN [Suspect]
     Indication: CONTRACEPTION
     Dosage: UNK
     Dates: start: 20140413, end: 20140419

REACTIONS (6)
  - Migraine [None]
  - Nausea [None]
  - Breast tenderness [None]
  - Metrorrhagia [None]
  - Fatigue [None]
  - Mood swings [None]
